FAERS Safety Report 11673040 (Version 1)
Quarter: 2015Q4

REPORT INFORMATION
  Report Type: Spontaneous
  Country: US (occurrence: None)
  Receive Date: 20151027
  Receipt Date: 20151027
  Transmission Date: 20160304
  Serious: Yes (Disabling, Other)
  Sender: FDA-Public Use
  Company Number: None

PATIENT
  Age: 39 Year
  Sex: Female
  Weight: 129.73 kg

DRUGS (7)
  1. BYDUREON [Suspect]
     Active Substance: EXENATIDE
     Indication: DIABETES MELLITUS
     Dosage: 1 PEN ONCE EVERY 7 DAYS INTO THE SKIN
     Dates: start: 20150916, end: 20150916
  2. CLONAZEPAM. [Concomitant]
     Active Substance: CLONAZEPAM
  3. PRENATAL VITAMINS [Concomitant]
     Active Substance: VITAMINS
  4. GLIPIZIDE 10 MG [Suspect]
     Active Substance: GLIPIZIDE
     Indication: DIABETES MELLITUS
     Route: 048
     Dates: start: 20150919, end: 20150922
  5. METFORMIN HCL ER [Concomitant]
     Active Substance: METFORMIN HYDROCHLORIDE
  6. CITALOPRAM [Concomitant]
     Active Substance: CITALOPRAM HYDROBROMIDE
  7. FISH OIL [Concomitant]
     Active Substance: FISH OIL

REACTIONS (3)
  - Fatigue [None]
  - Tremor [None]
  - Dysarthria [None]

NARRATIVE: CASE EVENT DATE: 20150916
